FAERS Safety Report 4838021-7 (Version None)
Quarter: 2005Q4

REPORT INFORMATION
  Report Type: 
  Country: None (occurrence: None)
  Receive Date: 20051123
  Receipt Date: 20051123
  Transmission Date: 20060501
  Serious: Yes (Life-Threatening)
  Sender: FDA-Public Use
  Company Number: None

PATIENT
  Sex: Female

DRUGS (10)
  1. METFORMIN [Suspect]
     Indication: DIABETES MELLITUS NON-INSULIN-DEPENDENT
     Dosage: 500 MG BID
  2. DIOVAN [Concomitant]
  3. CLONIDINE [Concomitant]
  4. NORVASC [Concomitant]
  5. AMIODARONE [Concomitant]
  6. NEURONTIN [Concomitant]
  7. MEGESTOL [Concomitant]
  8. LIPITOR [Concomitant]
  9. LISINOPRIL [Concomitant]
  10. GLYBURIDE [Concomitant]

REACTIONS (3)
  - ASTHENIA [None]
  - BLOOD GLUCOSE DECREASED [None]
  - LACTIC ACIDOSIS [None]
